FAERS Safety Report 20672030 (Version 2)
Quarter: 2023Q4

REPORT INFORMATION
  Report Type: Spontaneous
  Country: US (occurrence: US)
  Receive Date: 20220405
  Receipt Date: 20231011
  Transmission Date: 20240110
  Serious: Yes (Other)
  Sender: FDA-Public Use
  Company Number: US-NOVARTISTESTPH-NVSC2022US070604

PATIENT
  Age: 6 Year
  Sex: Female
  Weight: 28 kg

DRUGS (5)
  1. KYMRIAH [Suspect]
     Active Substance: TISAGENLECLEUCEL
     Indication: Acute lymphocytic leukaemia
     Dosage: UNK (3.83 E6 CELLS/ML TOTAL 2.6E6 CAR T VIABLE T CELLS/KG / BODY WEIGHT TNC 3.3 E7 CELLS/ML)
     Route: 042
     Dates: start: 20211108, end: 20211207
  2. ACYCLOVIR [Concomitant]
     Active Substance: ACYCLOVIR
     Indication: Antiviral prophylaxis
     Dosage: 200 MG, TID
     Route: 048
     Dates: start: 20211102, end: 20220307
  3. FLUCONAZOLE [Concomitant]
     Active Substance: FLUCONAZOLE
     Indication: Antifungal prophylaxis
     Dosage: 150 MG, QD
     Route: 048
     Dates: start: 20211102, end: 20211206
  4. SULFAMETHOXAZOLE AND TRIMETHOPRIM [Concomitant]
     Active Substance: SULFAMETHOXAZOLE\TRIMETHOPRIM
     Indication: Antifungal prophylaxis
     Dosage: 400-80 MG, 1 TABLET BID QF/S/SU
     Route: 048
     Dates: start: 20211102
  5. LEVOFLOXACIN [Concomitant]
     Active Substance: LEVOFLOXACIN
     Indication: Antibiotic prophylaxis
     Dosage: 250 MG, QD
     Route: 048
     Dates: start: 20211102, end: 20211206

REACTIONS (3)
  - Post-depletion B-cell recovery [Not Recovered/Not Resolved]
  - Cytokine release syndrome [Recovered/Resolved]
  - Pyrexia [Recovered/Resolved]

NARRATIVE: CASE EVENT DATE: 20211113
